FAERS Safety Report 18391852 (Version 1)
Quarter: 2020Q4

REPORT INFORMATION
  Report Type: Spontaneous
  Country: US (occurrence: US)
  Receive Date: 20201016
  Receipt Date: 20201016
  Transmission Date: 20210114
  Serious: Yes (Life-Threatening, Hospitalization)
  Sender: FDA-Public Use
  Company Number: US-MYLANLABS-2020M1086792

PATIENT
  Age: 74 Year
  Sex: Male

DRUGS (13)
  1. MIDAZOLAM. [Suspect]
     Active Substance: MIDAZOLAM
     Indication: STATUS EPILEPTICUS
     Dosage: 2 MILLIGRAM, QH
  2. LACOSAMIDE. [Suspect]
     Active Substance: LACOSAMIDE
     Indication: STATUS EPILEPTICUS
     Dosage: 200 MILLIGRAM AS LOADING DOSE
     Route: 065
  3. KETAMINE [Suspect]
     Active Substance: KETAMINE
     Indication: STATUS EPILEPTICUS
     Dosage: 60 MILLIGRAM 0.5 MG/KG AS LOADING DOSE
     Route: 042
  4. KETAMINE [Suspect]
     Active Substance: KETAMINE
     Dosage: 5 MILLIGRAM/KILOGRAM, QH
     Route: 042
  5. LORAZEPAM. [Suspect]
     Active Substance: LORAZEPAM
     Indication: STATUS EPILEPTICUS
     Dosage: 4 MILLIGRAM
     Route: 042
  6. FOSPHENYTOIN [Suspect]
     Active Substance: FOSPHENYTOIN
     Indication: STATUS EPILEPTICUS
     Dosage: UNK
     Route: 065
  7. KETAMINE [Suspect]
     Active Substance: KETAMINE
     Dosage: 7.5 MILLIGRAM/KILOGRAM, QH
     Route: 042
  8. LACOSAMIDE. [Suspect]
     Active Substance: LACOSAMIDE
     Dosage: 100 MILLIGRAM, BID
     Route: 065
  9. LEVETIRACETAM. [Suspect]
     Active Substance: LEVETIRACETAM
     Indication: STATUS EPILEPTICUS
     Dosage: 1 GRAM AS LOADING DOSE
     Route: 065
  10. MIDAZOLAM. [Suspect]
     Active Substance: MIDAZOLAM
     Dosage: 15 MILLIGRAM, QH
  11. KETAMINE [Suspect]
     Active Substance: KETAMINE
     Dosage: 1 MILLIGRAM/KILOGRAM, QH
     Route: 042
  12. LEVETIRACETAM. [Suspect]
     Active Substance: LEVETIRACETAM
     Dosage: 1 GRAM, BID
     Route: 065
  13. FOSPHENYTOIN [Suspect]
     Active Substance: FOSPHENYTOIN
     Dosage: 100 MILLIGRAM, TID RECEIVED THRICE DAILY
     Route: 065

REACTIONS (4)
  - Metabolic acidosis [Recovered/Resolved]
  - Abdominal compartment syndrome [Recovered/Resolved]
  - Urine output decreased [Recovered/Resolved]
  - Drug ineffective [Unknown]
